FAERS Safety Report 6908932-7 (Version None)
Quarter: 2010Q3

REPORT INFORMATION
  Report Type: 
  Country: None (occurrence: None)
  Receive Date: 20100803
  Receipt Date: 20100727
  Transmission Date: 20110219
  Serious: Yes (Other)
  Sender: FDA-Public Use
  Company Number: ENT-2010-0137

PATIENT
  Sex: Female

DRUGS (5)
  1. COMTAN [Suspect]
  2. EXELON [Suspect]
     Dosage: TRANSDERMAL
     Route: 062
  3. EXELON [Suspect]
     Dosage: TRANSDERMAL
     Route: 062
  4. SINEMET [Suspect]
  5. ZOLOFT [Suspect]

REACTIONS (5)
  - ASTHENIA [None]
  - HALLUCINATIONS, MIXED [None]
  - HYPOTENSION [None]
  - POOR QUALITY SLEEP [None]
  - URINARY TRACT INFECTION [None]
